FAERS Safety Report 4330696-4 (Version None)
Quarter: 2004Q2

REPORT INFORMATION
  Report Type: 
  Country: None (occurrence: None)
  Receive Date: 20040401
  Receipt Date: 20040401
  Transmission Date: 20050107
  Serious: No
  Sender: FDA-Public Use
  Company Number: None

PATIENT
  Age: 75 Year
  Sex: Male
  Weight: 115.2 kg

DRUGS (13)
  1. WARFARIN SODIUM [Suspect]
     Dosage: 4 MG , 4 MG Q PM, ORAL
     Route: 048
  2. LANOXIN [Concomitant]
  3. ASPIRIN [Concomitant]
  4. LISINOPRIL [Concomitant]
  5. COUMADIN [Concomitant]
  6. ALBUTEROL [Concomitant]
  7. AMIODARONE HCL (GENEVA) [Concomitant]
  8. GYLBURIDE [Concomitant]
  9. METOPROLOL SUCCINATE SA [Concomitant]
  10. NITROGLYCERIN [Concomitant]
  11. SENNOSIDES [Concomitant]
  12. SIMVASTATIN [Concomitant]
  13. FUROSEMIDE [Concomitant]

REACTIONS (1)
  - INTERNATIONAL NORMALISED RATIO ABNORMAL [None]
